FAERS Safety Report 12461651 (Version 2)
Quarter: 2016Q2

REPORT INFORMATION
  Report Type: Spontaneous
  Country: IT (occurrence: IT)
  Receive Date: 20160613
  Receipt Date: 20160620
  Transmission Date: 20160815
  Serious: Yes (Hospitalization)
  Sender: FDA-Public Use
  Company Number: IT-PFIZER INC-2016293018

PATIENT
  Age: 67 Year
  Sex: Female

DRUGS (3)
  1. METHOTREXATE [Concomitant]
     Active Substance: METHOTREXATE
  2. LINCOCIN [Suspect]
     Active Substance: LINCOMYCIN
     Indication: INFLUENZA
     Dosage: 1 DF, TOTAL
     Route: 030
     Dates: start: 20150707, end: 20150707
  3. MEDROL [Concomitant]
     Active Substance: METHYLPREDNISOLONE

REACTIONS (2)
  - Dizziness [Recovering/Resolving]
  - Visual acuity reduced [Recovering/Resolving]

NARRATIVE: CASE EVENT DATE: 20150707
